FAERS Safety Report 7949833-5 (Version None)
Quarter: 2011Q4

REPORT INFORMATION
  Report Type: 
  Country: None (occurrence: None)
  Receive Date: 20111130
  Receipt Date: 20111121
  Transmission Date: 20120403
  Serious: Yes (Other)
  Sender: FDA-Public Use
  Company Number: US-ABBOTT-11P-163-0876716-00

PATIENT
  Sex: Female
  Weight: 44.492 kg

DRUGS (4)
  1. DELSYM [Concomitant]
     Indication: PRODUCT USED FOR UNKNOWN INDICATION
  2. VITAMIN TAB [Concomitant]
     Indication: VITAMIN SUPPLEMENTATION
  3. LUPRON DEPOT-PED [Suspect]
     Indication: PRECOCIOUS PUBERTY
     Dates: start: 20101101, end: 20111101
  4. CLARITIN [Concomitant]
     Indication: PRODUCT USED FOR UNKNOWN INDICATION

REACTIONS (6)
  - INJECTION SITE INFECTION [None]
  - INJECTION SITE PAIN [None]
  - PURULENT DISCHARGE [None]
  - INJECTION SITE SWELLING [None]
  - INJECTION SITE ABSCESS STERILE [None]
  - PAIN [None]
